FAERS Safety Report 25442569 (Version 1)
Quarter: 2025Q2

REPORT INFORMATION
  Report Type: Spontaneous
  Country: US (occurrence: US)
  Receive Date: 20250617
  Receipt Date: 20250617
  Transmission Date: 20250716
  Serious: No
  Sender: STRIDES
  Company Number: US-STRIDES ARCOLAB LIMITED-2025SP001853

PATIENT
  Age: 8 Decade
  Sex: Male

DRUGS (13)
  1. HYDROCORTISONE [Suspect]
     Active Substance: HYDROCORTISONE
     Indication: Distributive shock
     Route: 065
  2. LISINOPRIL [Concomitant]
     Active Substance: LISINOPRIL
     Indication: Hypertension
     Route: 065
  3. MIDAZOLAM [Concomitant]
     Active Substance: MIDAZOLAM
     Indication: Anaesthesia
     Route: 065
  4. PROPOFOL [Concomitant]
     Active Substance: PROPOFOL
     Indication: Anaesthesia
     Route: 065
  5. FENTANYL [Concomitant]
     Active Substance: FENTANYL
     Indication: Anaesthesia
     Route: 065
  6. LIDOCAINE [Concomitant]
     Active Substance: LIDOCAINE
     Indication: Anaesthesia
     Route: 065
  7. METOPROLOL SUCCINATE [Concomitant]
     Active Substance: METOPROLOL SUCCINATE
     Indication: Atrial fibrillation
     Route: 065
  8. APIXABAN [Concomitant]
     Active Substance: APIXABAN
     Indication: Atrial fibrillation
     Route: 065
  9. EPINEPHRINE [Concomitant]
     Active Substance: EPINEPHRINE
     Indication: Haemodynamic instability
     Route: 065
  10. NOREPINEPHRINE [Concomitant]
     Active Substance: NOREPINEPHRINE
     Indication: Haemodynamic instability
     Route: 065
  11. AMIODARONE [Concomitant]
     Active Substance: AMIODARONE
     Indication: Atrial fibrillation
     Route: 065
  12. VASOPRESSIN [Concomitant]
     Active Substance: VASOPRESSIN
     Indication: Distributive shock
     Route: 065
  13. EPOPROSTENOL [Concomitant]
     Active Substance: EPOPROSTENOL
     Indication: Pulmonary hypertension
     Route: 065

REACTIONS (1)
  - Off label use [Unknown]
